FAERS Safety Report 9203918 (Version 1)
Quarter: 2013Q1

REPORT INFORMATION
  Report Type: Spontaneous
  Country: US (occurrence: None)
  Receive Date: 20130329
  Receipt Date: 20130329
  Transmission Date: 20140127
  Serious: Yes (Hospitalization)
  Sender: FDA-Public Use
  Company Number: None

PATIENT
  Age: 68 Year
  Sex: Male
  Weight: 106.8 kg

DRUGS (1)
  1. LISINOPRIL [Suspect]
     Indication: HYPERTENSION
     Dosage: AM
     Route: 048
     Dates: start: 20020328, end: 20130323

REACTIONS (3)
  - Respiratory failure [None]
  - Angioedema [None]
  - Respiratory depression [None]
